FAERS Safety Report 5593671-8 (Version None)
Quarter: 2008Q1

REPORT INFORMATION
  Report Type: 
  Country: None (occurrence: None)
  Receive Date: 20080116
  Receipt Date: 20080107
  Transmission Date: 20080703
  Serious: Yes (Hospitalization)
  Sender: FDA-Public Use
  Company Number: FR-ASTRAZENECA-2008CG00022

PATIENT
  Age: 8694 Day
  Sex: Female

DRUGS (2)
  1. ENTOCORT EC [Suspect]
     Indication: INFLAMMATORY PAIN
     Route: 048
     Dates: start: 20070713, end: 20070723
  2. NORDETTE-21 [Concomitant]
     Indication: CONTRACEPTION
     Route: 048
     Dates: end: 20070730

REACTIONS (1)
  - CYTOLYTIC HEPATITIS [None]
